FAERS Safety Report 16148579 (Version 3)
Quarter: 2019Q2

REPORT INFORMATION
  Report Type: Report from Study
  Country: IN (occurrence: IN)
  Receive Date: 20190402
  Receipt Date: 20190419
  Transmission Date: 20190711
  Serious: Yes (Death)
  Sender: FDA-Public Use
  Company Number: IN-PFIZER INC-2019138811

PATIENT
  Age: 63 Year
  Sex: Female
  Weight: 47 kg

DRUGS (5)
  1. LETROZOLE. [Concomitant]
     Active Substance: LETROZOLE
     Indication: BREAST CANCER
     Dosage: 2.5 MG, 1X/DAY
     Route: 048
     Dates: start: 20171212, end: 20190124
  2. GLYCERYL TRINITRATE [Concomitant]
     Active Substance: NITROGLYCERIN
     Indication: HYPERTENSION
     Dosage: 2.6 MG, 2X/DAY
     Route: 048
     Dates: start: 201404
  3. PALBOCICLIB [Suspect]
     Active Substance: PALBOCICLIB
     Indication: BREAST CANCER
     Dosage: 125 MG, CYCLIC (ONCE DAILY, 3 WEEKS ON / 1 WEEK OFF EVERY 28 DAY CYCLE)
     Route: 048
     Dates: start: 20180419, end: 20190117
  4. GLIMIDE [GLIMEPIRIDE] [Concomitant]
     Indication: DIABETES MELLITUS
     Dosage: 1 MG, 2X/DAY
     Route: 048
     Dates: start: 201404
  5. METFORMIN [Concomitant]
     Active Substance: METFORMIN HYDROCHLORIDE
     Indication: DIABETES MELLITUS
     Dosage: 500 MG, 2X/DAY
     Route: 048
     Dates: start: 201404

REACTIONS (1)
  - Death [Fatal]

NARRATIVE: CASE EVENT DATE: 20190327
